FAERS Safety Report 4504291-8 (Version None)
Quarter: 2004Q4

REPORT INFORMATION
  Report Type: 
  Country: None (occurrence: None)
  Receive Date: 20041118
  Receipt Date: 20040818
  Transmission Date: 20050328
  Serious: Yes (Hospitalization)
  Sender: FDA-Public Use
  Company Number: NL-BRISTOL-MYERS SQUIBB COMPANY-12674057

PATIENT
  Age: 44 Year
  Sex: Female

DRUGS (6)
  1. CISPLATIN [Suspect]
     Indication: OVARIAN CANCER
     Dosage: CTCLE 1: 26-MAR-2004
     Route: 042
     Dates: start: 20040505, end: 20040505
  2. PACLITAXEL [Suspect]
     Indication: OVARIAN CANCER
     Dosage: CYCLE 1: 26-MAR-2004
     Route: 042
     Dates: start: 20040505, end: 20040505
  3. SODIUM CHLORIDE INJ [Concomitant]
     Route: 042
     Dates: start: 20040326, end: 20040505
  4. PARIET [Concomitant]
     Dates: start: 20040101
  5. ALUMINUM HYDROXIDE AND MAGNESIUM TRISILICATE [Concomitant]
     Dates: start: 20040426
  6. AMARYL [Concomitant]
     Dates: start: 20040510

REACTIONS (4)
  - DIARRHOEA [None]
  - HYPOMAGNESAEMIA [None]
  - NAUSEA [None]
  - VOMITING [None]
